FAERS Safety Report 6527287-3 (Version None)
Quarter: 2010Q1

REPORT INFORMATION
  Report Type: 
  Country: None (occurrence: None)
  Receive Date: 20100104
  Receipt Date: 20100104
  Transmission Date: 20100710
  Serious: Yes (Hospitalization, Other)
  Sender: FDA-Public Use
  Company Number: None

PATIENT
  Sex: Female
  Weight: 54.4316 kg

DRUGS (11)
  1. LAMOTRIGINE [Suspect]
     Indication: DIZZINESS
     Dosage: 1/2 OF A 100MG (50MG) TWICE A DAY 047-ORAL
     Route: 048
     Dates: start: 20080401, end: 20091112
  2. LAMOTRIGINE [Suspect]
     Indication: VERTIGO
     Dosage: 1/2 OF A 100MG (50MG) TWICE A DAY 047-ORAL
     Route: 048
     Dates: start: 20080401, end: 20091112
  3. ISOOSORBIDE MONONITRATE [Concomitant]
  4. LOTREL [Concomitant]
  5. CRESTOR [Concomitant]
  6. ASPIRIN [Concomitant]
  7. ZVMAR [Concomitant]
  8. ALPHAGAN [Concomitant]
  9. ATROVENT [Concomitant]
  10. VERAMYST [Concomitant]
  11. FOLIC ACID [Concomitant]

REACTIONS (8)
  - DRY SKIN [None]
  - INFLAMMATION [None]
  - OEDEMA PERIPHERAL [None]
  - PRURITUS [None]
  - RASH GENERALISED [None]
  - SKIN EXFOLIATION [None]
  - SKIN FISSURES [None]
  - TRANSIENT ISCHAEMIC ATTACK [None]
